FAERS Safety Report 5974336-7 (Version None)
Quarter: 2008Q4

REPORT INFORMATION
  Report Type: 
  Country: None (occurrence: None)
  Receive Date: 20081201
  Receipt Date: 20081126
  Transmission Date: 20090506
  Serious: Yes (Other)
  Sender: FDA-Public Use
  Company Number: JP-PFIZER INC-2008089004

PATIENT
  Sex: Female
  Weight: 52 kg

DRUGS (3)
  1. CELECOX [Suspect]
     Indication: RHEUMATOID ARTHRITIS
     Route: 048
     Dates: start: 20080329, end: 20081020
  2. HERBAL PREPARATION [Concomitant]
     Indication: CONSTIPATION
     Route: 048
     Dates: start: 20030606
  3. MEXITIL [Concomitant]
     Indication: ARRHYTHMIA
     Route: 048
     Dates: start: 19991208

REACTIONS (1)
  - MOUTH HAEMORRHAGE [None]
